FAERS Safety Report 8663866 (Version 3)
Quarter: 2012Q4

REPORT INFORMATION
  Report Type: Report from Study
  Country: CA (occurrence: CA)
  Receive Date: 20120713
  Receipt Date: 20121129
  Transmission Date: 20130627
  Serious: Yes (Hospitalization, Other)
  Sender: FDA-Public Use
  Company Number: CA-JNJFOC-20120702611

PATIENT
  Sex: Male
  Weight: 89.3 kg

DRUGS (14)
  1. REMICADE [Suspect]
     Indication: CROHN^S DISEASE
     Route: 042
     Dates: start: 20091207
  2. REMICADE [Suspect]
     Indication: CROHN^S DISEASE
     Dosage: start date approximately OCT-2009
     Route: 042
     Dates: start: 200911
  3. TEGRETOL [Concomitant]
     Route: 065
  4. RABEPRAZOLE [Concomitant]
     Route: 065
  5. CALCIUM [Concomitant]
     Route: 065
  6. PERCOCET [Concomitant]
     Route: 048
  7. GRAVOL [Concomitant]
     Route: 065
  8. VITAMIN D [Concomitant]
     Route: 065
  9. IRON [Concomitant]
     Route: 065
  10. VITAMIN C [Concomitant]
     Route: 065
  11. VITAMIN B12 [Concomitant]
     Route: 065
  12. ALL OTHER NON-THERAPEUTIC PRODUCTS [Concomitant]
     Route: 065
  13. MULTIVITAMINS [Concomitant]
     Route: 065
  14. TRAMACET [Concomitant]
     Route: 065

REACTIONS (3)
  - Hernia [Recovering/Resolving]
  - Dermal cyst [Recovering/Resolving]
  - Post procedural infection [Recovering/Resolving]
